FAERS Safety Report 4543763-7 (Version None)
Quarter: 2005Q1

REPORT INFORMATION
  Report Type: 
  Country: None (occurrence: None)
  Receive Date: 20050103
  Receipt Date: 20041002
  Transmission Date: 20050727
  Serious: Yes (Other)
  Sender: FDA-Public Use
  Company Number: ES-MERCK-0410ESP00012

PATIENT
  Age: 62 Year
  Sex: Female

DRUGS (4)
  1. VIOXX [Suspect]
     Indication: NECK PAIN
     Route: 048
     Dates: end: 20040930
  2. ACETAMINOPHEN [Concomitant]
     Indication: PAIN
     Route: 048
  3. OMEPRAZOLE [Concomitant]
     Indication: PROPHYLAXIS
     Route: 048
  4. AMILORIDE HCL AND HYDROCHLOROTHIAZIDE [Concomitant]
     Indication: HYPERTENSION
     Route: 048

REACTIONS (2)
  - PALPITATIONS [None]
  - VASCULITIS [None]
